FAERS Safety Report 7555249-6 (Version None)
Quarter: 2011Q2

REPORT INFORMATION
  Report Type: 
  Country: None (occurrence: None)
  Receive Date: 20110617
  Receipt Date: 20110615
  Transmission Date: 20111010
  Serious: Yes (Death)
  Sender: FDA-Public Use
  Company Number: PHHY2011US49326

PATIENT
  Sex: Male
  Weight: 86.168 kg

DRUGS (2)
  1. TEGRETOL [Suspect]
  2. ANTIEPILEPTICS [Concomitant]

REACTIONS (2)
  - MALIGNANT MELANOMA [None]
  - METASTASES TO LUNG [None]
